FAERS Safety Report 5684122-3 (Version None)
Quarter: 2008Q1

REPORT INFORMATION
  Report Type: 
  Country: None (occurrence: None)
  Receive Date: 20080328
  Receipt Date: 20070706
  Transmission Date: 20080703
  Serious: No
  Sender: FDA-Public Use
  Company Number: US-AMGEN-US232664

PATIENT
  Sex: Male
  Weight: 62.7 kg

DRUGS (2)
  1. NEULASTA [Suspect]
     Indication: CHEMOTHERAPY
     Route: 058
     Dates: start: 20070621
  2. CARBOTAXOL [Concomitant]
     Route: 065

REACTIONS (1)
  - DRUG PRESCRIBING ERROR [None]
